FAERS Safety Report 7489222-3 (Version None)
Quarter: 2011Q2

REPORT INFORMATION
  Report Type: 
  Country: None (occurrence: None)
  Receive Date: 20110518
  Receipt Date: 20110513
  Transmission Date: 20111010
  Serious: Yes (Other)
  Sender: FDA-Public Use
  Company Number: BR-PFIZER INC-2011104710

PATIENT
  Sex: Male

DRUGS (1)
  1. IBUPROFEN [Suspect]
     Route: 048

REACTIONS (6)
  - THROAT IRRITATION [None]
  - OESOPHAGEAL PAIN [None]
  - APHONIA [None]
  - OROPHARYNGEAL PAIN [None]
  - STOMATITIS [None]
  - LARYNGOSPASM [None]
